FAERS Safety Report 17031438 (Version 14)
Quarter: 2024Q1

REPORT INFORMATION
  Report Type: Spontaneous
  Country: US (occurrence: US)
  Receive Date: 20191114
  Receipt Date: 20240201
  Transmission Date: 20240410
  Serious: Yes (Other)
  Sender: FDA-Public Use
  Company Number: US-PFIZER INC-2019491066

PATIENT
  Age: 69 Year
  Sex: Female
  Weight: 95.238 kg

DRUGS (1)
  1. XELJANZ XR [Suspect]
     Active Substance: TOFACITINIB CITRATE
     Indication: Rheumatoid arthritis
     Dosage: 11 MG
     Dates: end: 201909

REACTIONS (12)
  - Meningitis [Unknown]
  - Carpal tunnel syndrome [Unknown]
  - Pain [Unknown]
  - Muscle spasms [Unknown]
  - Malaise [Not Recovered/Not Resolved]
  - Asthenia [Unknown]
  - Gait disturbance [Unknown]
  - Housebound [Unknown]
  - Pain in extremity [Unknown]
  - Condition aggravated [Unknown]
  - Memory impairment [Unknown]
  - Gait inability [Unknown]
